FAERS Safety Report 12556015 (Version 1)
Quarter: 2016Q3

REPORT INFORMATION
  Report Type: Spontaneous
  Country: US (occurrence: None)
  Receive Date: 20160713
  Receipt Date: 20160713
  Transmission Date: 20161109
  Serious: Yes (Other)
  Sender: FDA-Public Use
  Company Number: None

PATIENT
  Age: 56 Year
  Sex: Female
  Weight: 81.65 kg

DRUGS (1)
  1. BUTRANS [Suspect]
     Active Substance: BUPRENORPHINE
     Indication: PAIN
     Dosage: 1 PATCH(ES), APPLIED AS MEDICATED PATCH TO SKIN
     Dates: start: 20160325, end: 20160711

REACTIONS (4)
  - Chemical injury [None]
  - Drug ineffective [None]
  - Application site vesicles [None]
  - Application site burn [None]

NARRATIVE: CASE EVENT DATE: 20160711
